FAERS Safety Report 11680536 (Version 4)
Quarter: 2015Q4

REPORT INFORMATION
  Report Type: Spontaneous
  Country: PL (occurrence: PL)
  Receive Date: 20151029
  Receipt Date: 20151221
  Transmission Date: 20160304
  Serious: Yes (Hospitalization, Other)
  Sender: FDA-Public Use
  Company Number: PL-ROCHE-1650383

PATIENT
  Sex: Female

DRUGS (2)
  1. PEGASYS [Suspect]
     Active Substance: PEGINTERFERON ALFA-2A
     Indication: HEPATITIS B
     Route: 058
     Dates: start: 201404, end: 20141114
  2. PEGASYS [Suspect]
     Active Substance: PEGINTERFERON ALFA-2A
     Route: 065
     Dates: start: 2014, end: 201412

REACTIONS (11)
  - Neutropenia [Recovered/Resolved]
  - Lyme disease [Unknown]
  - Visual impairment [Recovered/Resolved]
  - Borrelia test positive [Recovered/Resolved]
  - Drug intolerance [Recovered/Resolved]
  - Demyelination [Recovered/Resolved]
  - Nervous system disorder [Recovered/Resolved]
  - Platelet count decreased [Unknown]
  - Neutrophil count decreased [Recovered/Resolved]
  - Optic neuritis [Recovered/Resolved]
  - Multiple sclerosis [Recovered/Resolved]

NARRATIVE: CASE EVENT DATE: 201411
